FAERS Safety Report 23538286 (Version 1)
Quarter: 2024Q1

REPORT INFORMATION
  Report Type: Spontaneous
  Country: NO (occurrence: NO)
  Receive Date: 20240219
  Receipt Date: 20240219
  Transmission Date: 20240410
  Serious: Yes (Hospitalization)
  Sender: FDA-Public Use
  Company Number: None

PATIENT
  Age: 80 Year
  Sex: Male

DRUGS (8)
  1. ESCITALOPRAM [Suspect]
     Active Substance: ESCITALOPRAM OXALATE
     Indication: Anxiety
     Dosage: THE PATIENT HAS USED 5 MG PER DAY AT LEAST SINCE 2018 (EXACT START DATE UNKNOWN), BUT TWO DAYS BE...
     Route: 048
     Dates: start: 2018, end: 202310
  2. ASPIRIN [Concomitant]
     Active Substance: ASPIRIN
     Indication: Product used for unknown indication
     Dosage: ACETYLSALISYLSYRE ACTAVIS
     Route: 065
  3. SINEMET [Concomitant]
     Active Substance: CARBIDOPA\LEVODOPA
     Indication: Parkinson^s disease
     Route: 065
  4. OXAZEPAM [Concomitant]
     Active Substance: OXAZEPAM
     Indication: Product used for unknown indication
     Dosage: TIME INTERVAL: AS NECESSARY: AS REQUIRED, NOT DAILY
  5. BENSERAZIDE HYDROCHLORIDE\LEVODOPA [Concomitant]
     Active Substance: BENSERAZIDE HYDROCHLORIDE\LEVODOPA
     Indication: Product used for unknown indication
     Dosage: MADOPAR SOLUBILE 12,5/50
     Route: 065
  6. ACETAMINOPHEN [Concomitant]
     Active Substance: ACETAMINOPHEN
     Indication: Product used for unknown indication
     Route: 065
  7. LACTULOSE MIP [Concomitant]
     Indication: Product used for unknown indication
     Dosage: LAKTULOSE MIP PHARMA
     Route: 065
  8. PANTOPRAZOLE [Concomitant]
     Active Substance: PANTOPRAZOLE
     Indication: Product used for unknown indication
     Dosage: PANTOPRAZOL ACTAVIS

REACTIONS (7)
  - Muscle rigidity [Unknown]
  - Aphasia [Recovering/Resolving]
  - Generalised tonic-clonic seizure [Recovered/Resolved]
  - Anxiety [Unknown]
  - Dysarthria [Recovering/Resolving]
  - Myalgia [Unknown]
  - Confusional state [Unknown]

NARRATIVE: CASE EVENT DATE: 20231001
